FAERS Safety Report 7748184-1 (Version None)
Quarter: 2011Q3

REPORT INFORMATION
  Report Type: 
  Country: None (occurrence: None)
  Receive Date: 20110913
  Receipt Date: 20110907
  Transmission Date: 20111222
  Serious: Yes (Other)
  Sender: FDA-Public Use
  Company Number: JP-ABBOTT-11P-087-0850294-00

PATIENT
  Age: 82 Year
  Sex: Male

DRUGS (8)
  1. POTASSIUM L/ASPARTATE [Concomitant]
     Indication: PRODUCT USED FOR UNKNOWN INDICATION
  2. CLARITHROMYCIN [Suspect]
     Indication: NASOPHARYNGITIS
     Route: 051
     Dates: start: 20110719
  3. WARFARIN SODIUM [Concomitant]
     Indication: PRODUCT USED FOR UNKNOWN INDICATION
  4. GLYBURIDE [Concomitant]
     Indication: PRODUCT USED FOR UNKNOWN INDICATION
  5. CLARITHROMYCIN [Suspect]
     Indication: PYREXIA
  6. METILDIGOXIN [Concomitant]
     Indication: PRODUCT USED FOR UNKNOWN INDICATION
  7. CLARITHROMYCIN [Suspect]
     Indication: COUGH
  8. VOGLIBOSE [Concomitant]
     Indication: PRODUCT USED FOR UNKNOWN INDICATION

REACTIONS (2)
  - DEPRESSED LEVEL OF CONSCIOUSNESS [None]
  - HYPOGLYCAEMIA [None]
